FAERS Safety Report 14362610 (Version 1)
Quarter: 2018Q1

REPORT INFORMATION
  Report Type: Spontaneous
  Country: US (occurrence: US)
  Receive Date: 20180105
  Receipt Date: 20180105
  Transmission Date: 20180509
  Serious: Yes (Other)
  Sender: FDA-Public Use
  Company Number: None

PATIENT
  Age: 61 Year
  Sex: Female
  Weight: 74.25 kg

DRUGS (9)
  1. COPAXONE [Suspect]
     Active Substance: GLATIRAMER ACETATE
     Indication: MULTIPLE SCLEROSIS
     Dosage: ?          QUANTITY:1 INJECTION(S);OTHER FREQUENCY:3 TIMES PER WEEK;?
     Route: 058
     Dates: start: 20150131, end: 20180103
  2. VITAMIN B12 [Concomitant]
     Active Substance: CYANOCOBALAMIN
  3. BUPROPION HYDROCHLORIDE XL [Concomitant]
     Active Substance: BUPROPION HYDROCHLORIDE
  4. ADVIL [Concomitant]
     Active Substance: IBUPROFEN
  5. NALTREXONE [Concomitant]
     Active Substance: NALTREXONE
  6. MODAFINIL. [Concomitant]
     Active Substance: MODAFINIL
  7. ACETYI-L-CARNITINE [Concomitant]
  8. EXCEDRINE [Concomitant]
  9. DRISDOL [Concomitant]
     Active Substance: ERGOCALCIFEROL

REACTIONS (6)
  - Nausea [None]
  - Muscle spasms [None]
  - Dyspnoea [None]
  - Pain in extremity [None]
  - Hyperhidrosis [None]
  - Asthenia [None]

NARRATIVE: CASE EVENT DATE: 20180103
